FAERS Safety Report 13503500 (Version 4)
Quarter: 2017Q2

REPORT INFORMATION
  Report Type: Report from Study
  Country: AU (occurrence: AU)
  Receive Date: 20170502
  Receipt Date: 20170626
  Transmission Date: 20170830
  Serious: Yes (Death, Hospitalization, Other)
  Sender: FDA-Public Use
  Company Number: AU-ACTELION-A-CH2017-152868

PATIENT
  Age: 2 Year
  Sex: Male

DRUGS (5)
  1. VELETRI [Suspect]
     Active Substance: EPOPROSTENOL
     Indication: PULMONARY ARTERIAL HYPERTENSION
     Dosage: 500 ?G, UNK
     Route: 042
  2. SILDENAFIL. [Concomitant]
     Active Substance: SILDENAFIL
     Indication: PULMONARY ARTERIAL HYPERTENSION
     Dosage: 15 MG, TID
     Route: 048
     Dates: start: 20160901
  3. WARFARIN [Interacting]
     Active Substance: WARFARIN
     Indication: PRODUCT USED FOR UNKNOWN INDICATION
     Route: 065
  4. PROTHROMBIN [Suspect]
     Active Substance: PROTHROMBIN
     Indication: PROCOAGULANT THERAPY
     Route: 065
  5. AMBRISENTAN [Concomitant]
     Active Substance: AMBRISENTAN
     Indication: PULMONARY ARTERIAL HYPERTENSION
     Dosage: 5 MG, OD
     Route: 048
     Dates: start: 20161001

REACTIONS (7)
  - Respiratory failure [Fatal]
  - Circulatory collapse [Unknown]
  - Influenza [Unknown]
  - Ear infection [Recovered/Resolved]
  - Cerebrovascular accident [Recovered/Resolved]
  - Toxicity to various agents [Unknown]
  - Drug interaction [Unknown]

NARRATIVE: CASE EVENT DATE: 20170513
